FAERS Safety Report 22282115 (Version 1)
Quarter: 2023Q2

REPORT INFORMATION
  Report Type: Spontaneous
  Country: KR (occurrence: KR)
  Receive Date: 20230504
  Receipt Date: 20230504
  Transmission Date: 20230721
  Serious: Yes (Other)
  Sender: FDA-Public Use
  Company Number: KR-BoehringerIngelheim-2023-BI-234852

PATIENT
  Age: 82 Year
  Sex: Male
  Weight: 73 kg

DRUGS (13)
  1. MICARDIS [Suspect]
     Active Substance: TELMISARTAN
     Indication: Essential hypertension
     Route: 048
     Dates: start: 20200408
  2. MICARDIS [Suspect]
     Active Substance: TELMISARTAN
     Route: 048
     Dates: start: 20200506
  3. EZETIMIBE\ROSUVASTATIN CALCIUM [Suspect]
     Active Substance: EZETIMIBE\ROSUVASTATIN CALCIUM
     Indication: Hyperlipidaemia
     Dosage: UNIT DOSE 1 DOSAGE FORM
     Route: 048
     Dates: start: 20200408
  4. EZETIMIBE\ROSUVASTATIN CALCIUM [Suspect]
     Active Substance: EZETIMIBE\ROSUVASTATIN CALCIUM
     Dosage: UNIT DOSE 1 DOSAGE FORM
     Route: 048
     Dates: start: 20200506
  5. TAMSULOSIN HYDROCHLORIDE [Concomitant]
     Active Substance: TAMSULOSIN HYDROCHLORIDE
     Indication: Benign prostatic hyperplasia
     Route: 048
     Dates: start: 20191120, end: 20200223
  6. Amlodipine Besylate;Hydrochlorothiazide;Olmesartan Medoxomil [Concomitant]
     Indication: Product used for unknown indication
     Dosage: UNIT DOSE 1 DOSAGE FORM
     Route: 048
     Dates: start: 20170629, end: 20200217
  7. MOSAPRIDE CITRATE [Concomitant]
     Active Substance: MOSAPRIDE CITRATE
     Indication: Prophylaxis
     Route: 048
     Dates: start: 20191203, end: 20200417
  8. LIDOCAINE [Concomitant]
     Active Substance: LIDOCAINE
     Indication: Laboratory test
     Route: 048
     Dates: start: 20200331, end: 20200331
  9. LIDOCAINE [Concomitant]
     Active Substance: LIDOCAINE
     Dosage: ROUTE OF ADMINISTRATION WAS REPORTED AS ^OTHERS^.
     Dates: start: 20200413, end: 20200413
  10. Tropicamide;Phenylephrine Hydrochloride [Concomitant]
     Indication: Laboratory test
     Dosage: UNIT DOSE 1 DOSAGE FORM
     Route: 047
     Dates: start: 20200227, end: 20200227
  11. SIMETHICONE (DIMETHICONE) [Concomitant]
     Active Substance: DIMETHICONE
     Indication: Laboratory test
     Route: 048
     Dates: start: 20200331, end: 20200331
  12. ASPIRIN [Concomitant]
     Active Substance: ASPIRIN
     Indication: Prophylaxis
     Route: 048
     Dates: start: 20170416, end: 20200410
  13. ACETYLCYSTEINE [Concomitant]
     Active Substance: ACETYLCYSTEINE
     Indication: Laboratory test
     Route: 042
     Dates: start: 20200517, end: 20200517

REACTIONS (1)
  - Lung neoplasm malignant [Not Recovered/Not Resolved]

NARRATIVE: CASE EVENT DATE: 20200520
